FAERS Safety Report 7936020-X (Version None)
Quarter: 2011Q4

REPORT INFORMATION
  Report Type: 
  Country: None (occurrence: None)
  Receive Date: 20111123
  Receipt Date: 20111114
  Transmission Date: 20120403
  Serious: Yes (Other)
  Sender: FDA-Public Use
  Company Number: US-BAYER-2011-058388

PATIENT
  Age: 21 Year
  Sex: Female
  Weight: 90.703 kg

DRUGS (7)
  1. ETHINYL ESTRADIOL [Concomitant]
  2. YASMIN [Suspect]
     Indication: PREMENSTRUAL SYNDROME
  3. LEVONORGESTREL [Concomitant]
  4. YASMIN [Suspect]
     Indication: MENSTRUATION IRREGULAR
  5. YASMIN [Suspect]
     Indication: CONTRACEPTION
     Dosage: UNK
     Route: 048
     Dates: start: 20090801, end: 20091020
  6. METFORMIN [Concomitant]
     Indication: UNEVALUABLE EVENT
     Dosage: UNK
     Dates: start: 20090904
  7. ORTHO TRI-CYCLEN [Concomitant]
     Dosage: UNK
     Dates: end: 20091005

REACTIONS (6)
  - BILIARY DYSKINESIA [None]
  - VOMITING [None]
  - INJURY [None]
  - NAUSEA [None]
  - ABDOMINAL PAIN [None]
  - CHOLECYSTITIS CHRONIC [None]
